FAERS Safety Report 6151881-5 (Version None)
Quarter: 2009Q2

REPORT INFORMATION
  Report Type: 
  Country: None (occurrence: None)
  Receive Date: 20090410
  Receipt Date: 20070314
  Transmission Date: 20091009
  Serious: Yes (Hospitalization, Disabling, Other)
  Sender: FDA-Public Use
  Company Number: US-ASTRAZENECA-2006UW11003

PATIENT
  Age: 16549 Day
  Sex: Female
  Weight: 61.7 kg

DRUGS (27)
  1. SEROQUEL [Suspect]
     Indication: PSYCHOTIC DISORDER
     Dosage: 200-400 MG
     Route: 048
     Dates: start: 20020909, end: 20030925
  2. SEROQUEL [Suspect]
     Indication: SLEEP DISORDER
     Dosage: 200-400 MG
     Route: 048
     Dates: start: 20020909, end: 20030925
  3. ZYPREXA [Suspect]
  4. ACETAMINOPHEN [Concomitant]
  5. ALBUTEROL [Concomitant]
  6. AMITRIPTYLINE HCL [Concomitant]
  7. AMOXICILLIN [Concomitant]
  8. ABILIFY [Concomitant]
  9. BECLOMETHASONE DIPROPIONATE [Concomitant]
  10. BUSPAR [Concomitant]
  11. CEFTRIAXONE [Concomitant]
  12. CIPROFLOXACIN [Concomitant]
  13. DIPHENHYDRAMINE HCL [Concomitant]
  14. DEPAKOTE [Concomitant]
  15. NEURONTIN [Concomitant]
  16. GUAIFENESIN [Concomitant]
  17. MOTRIN [Concomitant]
  18. LAMOTRIGINE [Concomitant]
  19. LEVOFLOXACIN [Concomitant]
  20. ATIVAN [Concomitant]
  21. OXAZEPAM [Concomitant]
  22. PYRIDIUM [Concomitant]
  23. PREDNISONE [Concomitant]
  24. PSEUDOEPHEDRINE HCL [Concomitant]
  25. TRAZODONE HCL [Concomitant]
  26. GEODON [Concomitant]
  27. RISPERDAL CONSTA [Concomitant]

REACTIONS (19)
  - CERVIX DISORDER [None]
  - CONSTIPATION [None]
  - COUGH [None]
  - DIARRHOEA [None]
  - DIZZINESS [None]
  - DRUG DEPENDENCE [None]
  - DYSURIA [None]
  - EAR PAIN [None]
  - HEADACHE [None]
  - HOMICIDAL IDEATION [None]
  - HYPOMANIA [None]
  - HYPONATRAEMIA [None]
  - ILL-DEFINED DISORDER [None]
  - PARANOIA [None]
  - PYELONEPHRITIS [None]
  - SUICIDAL IDEATION [None]
  - URINARY TRACT INFECTION [None]
  - VAGINAL HAEMORRHAGE [None]
  - VOMITING [None]
